FAERS Safety Report 14100526 (Version 1)
Quarter: 2017Q4

REPORT INFORMATION
  Report Type: Spontaneous
  Country: US (occurrence: US)
  Receive Date: 20171017
  Receipt Date: 20171017
  Transmission Date: 20180321
  Serious: Yes (Other)
  Sender: FDA-Public Use
  Company Number: US-AMGEN-USASP2017155296

PATIENT
  Age: 53 Year
  Sex: Male

DRUGS (14)
  1. DILTIAZEM CD [Concomitant]
     Active Substance: DILTIAZEM
     Dosage: 240 MG, UNK
  2. DOXYCYCLINE. [Concomitant]
     Active Substance: DOXYCYCLINE
     Dosage: 100 MG, UNK
  3. HYDROXYCHLOROQUINE [Concomitant]
     Active Substance: HYDROXYCHLOROQUINE
     Dosage: 200 MG, UNK
  4. LISINOPRIL. [Concomitant]
     Active Substance: LISINOPRIL
     Dosage: 5 MG, UNK
  5. METOPROLOL. [Concomitant]
     Active Substance: METOPROLOL
     Dosage: 50 MG, UNK
  6. BUPROPION HCL [Concomitant]
     Active Substance: BUPROPION HYDROCHLORIDE
     Dosage: 300 MG, UNK
  7. CLINDAMYCIN. [Concomitant]
     Active Substance: CLINDAMYCIN
     Dosage: 300 MG, UNK
  8. CLOPIDOGREL [Concomitant]
     Active Substance: CLOPIDOGREL BISULFATE
     Dosage: 75 MG, UNK
  9. GLIMEPIRIDE. [Concomitant]
     Active Substance: GLIMEPIRIDE
     Dosage: 4 MG, UNK
  10. VASCEPA [Concomitant]
     Active Substance: ICOSAPENT ETHYL
     Dosage: 1 G, UNK
  11. LYRICA [Concomitant]
     Active Substance: PREGABALIN
     Dosage: 100 MG, UNK
  12. ENBREL [Suspect]
     Active Substance: ETANERCEPT
     Indication: PSORIATIC ARTHROPATHY
     Dosage: 50 MG, QWK (ON THE SAME DAY OF THE WEEK)
     Route: 058
     Dates: start: 20170728, end: 2017
  13. CIPROFLOXACIN. [Concomitant]
     Active Substance: CIPROFLOXACIN
     Dosage: UNK
  14. FENOFIBRATE. [Concomitant]
     Active Substance: FENOFIBRATE
     Dosage: 160 MG, UNK

REACTIONS (1)
  - Hepatic enzyme increased [Recovered/Resolved]

NARRATIVE: CASE EVENT DATE: 2017
